FAERS Safety Report 17149443 (Version 1)
Quarter: 2019Q4

REPORT INFORMATION
  Report Type: Spontaneous
  Country: DE (occurrence: PF)
  Receive Date: 20191213
  Receipt Date: 20191213
  Transmission Date: 20200122
  Serious: Yes (Hospitalization, Other)
  Sender: FDA-Public Use
  Company Number: DE-AMGEN-PYFSP2019203010

PATIENT
  Sex: Female
  Weight: 70 kg

DRUGS (17)
  1. HUMIRA [Suspect]
     Active Substance: ADALIMUMAB
     Dosage: UNK, Q4WK
     Route: 058
     Dates: start: 2018, end: 20190218
  2. SALBUTAMOL [Concomitant]
     Active Substance: ALBUTEROL
     Indication: PRODUCT USED FOR UNKNOWN INDICATION
     Route: 055
  3. HUMIRA [Suspect]
     Active Substance: ADALIMUMAB
     Indication: PSORIASIS
     Dosage: 40 MILLIGRAM, Q2WK
     Route: 058
     Dates: start: 20170629
  4. L-THYROXIN [LEVOTHYROXINE] [Concomitant]
     Active Substance: LEVOTHYROXINE SODIUM
     Indication: PRODUCT USED FOR UNKNOWN INDICATION
     Dosage: UNK, QD
  5. VIANI [Concomitant]
     Active Substance: FLUTICASONE PROPIONATE\SALMETEROL XINAFOATE
     Indication: PRODUCT USED FOR UNKNOWN INDICATION
     Dosage: 50/100 UG FOLLOWING DISCUSSION, QD
     Route: 055
  6. AMGEVITA [Suspect]
     Active Substance: ADALIMUMAB
     Indication: PSORIATIC ARTHROPATHY
     Dosage: 40 MILLIGRAM
     Route: 065
     Dates: start: 20190626
  7. SALBUTAMOL [Suspect]
     Active Substance: ALBUTEROL
     Indication: PRODUCT USED FOR UNKNOWN INDICATION
     Dosage: 5 MILLILITER, AS NECESSARY (BEFORE LEVOFLOXACIN INHALATION)
     Route: 055
  8. AIRFLUSAL FORSPIRO [Concomitant]
     Active Substance: FLUTICASONE PROPIONATE\SALMETEROL XINAFOATE
     Dosage: 2 OT, QD
  9. AIRFLUSAL FORSPIRO [Concomitant]
     Active Substance: FLUTICASONE PROPIONATE\SALMETEROL XINAFOATE
     Dosage: UNK, QD
  10. EMSER SOLE [Concomitant]
     Indication: PRODUCT USED FOR UNKNOWN INDICATION
     Dosage: 5 MILLILITER, AS REQUIRED 3 TIMES A DAY
     Route: 065
  11. LEVOTHYROXINE. [Concomitant]
     Active Substance: LEVOTHYROXINE
     Indication: PRODUCT USED FOR UNKNOWN INDICATION
     Dosage: 125 MILLIGRAM, QD
  12. AMGEVITA [Suspect]
     Active Substance: ADALIMUMAB
     Indication: PSORIASIS
     Dosage: UNK
     Route: 065
  13. AIRFLUSAL FORSPIRO [Suspect]
     Active Substance: FLUTICASONE PROPIONATE\SALMETEROL XINAFOATE
     Indication: PRODUCT USED FOR UNKNOWN INDICATION
     Dosage: UNK
     Route: 055
     Dates: start: 20170715
  14. FLUTICASONE. [Concomitant]
     Active Substance: FLUTICASONE
     Dosage: 2 DOSAGE FORM, QD
     Route: 045
  15. HUMIRA [Suspect]
     Active Substance: ADALIMUMAB
     Dosage: UNK
     Route: 058
     Dates: start: 2019
  16. L-THYROXIN [LEVOTHYROXINE SODIUM] [Suspect]
     Active Substance: LEVOTHYROXINE SODIUM
     Indication: PRODUCT USED FOR UNKNOWN INDICATION
     Dosage: 100 MICROGRAM
     Route: 048
  17. FLUTICASONE. [Concomitant]
     Active Substance: FLUTICASONE
     Indication: PRODUCT USED FOR UNKNOWN INDICATION
     Dosage: UNK UNK, QD
     Route: 045

REACTIONS (38)
  - Breath sounds abnormal [Unknown]
  - Bronchial obstruction [Unknown]
  - Mucosal haemorrhage [Unknown]
  - Haemoptysis [Unknown]
  - Hiatus hernia [Unknown]
  - Drug intolerance [Unknown]
  - Haemophilus infection [Unknown]
  - Staphylococcal infection [Unknown]
  - Pulmonary oedema [Unknown]
  - Haemoptysis [Unknown]
  - Lung disorder [Unknown]
  - Blood immunoglobulin E increased [Unknown]
  - Pneumonia [Unknown]
  - Bronchiolitis [Unknown]
  - Bronchiectasis [Unknown]
  - Infection susceptibility increased [Unknown]
  - Increased upper airway secretion [Unknown]
  - Traumatic lung injury [Unknown]
  - Asthma [Unknown]
  - Pulmonary haemorrhage [Unknown]
  - Thyroid atrophy [Unknown]
  - Dyspnoea [Unknown]
  - Tracheobronchitis [Unknown]
  - Chronic sinusitis [Unknown]
  - Immunodeficiency [Unknown]
  - Conjunctivitis allergic [Unknown]
  - Inflammation [Unknown]
  - Haemophilus infection [Recovering/Resolving]
  - Respiratory tract infection [Recovered/Resolved]
  - Obstructive airways disorder [Unknown]
  - Hilar lymphadenopathy [Unknown]
  - Immunodeficiency [Not Recovered/Not Resolved]
  - Hyperthyroidism [Unknown]
  - Cystitis noninfective [Unknown]
  - Bronchial wall thickening [Unknown]
  - Bronchitis [Unknown]
  - Bronchitis bacterial [Unknown]
  - Dyspnoea [Unknown]

NARRATIVE: CASE EVENT DATE: 20190801
